FAERS Safety Report 20432236 (Version 1)
Quarter: 2022Q1

REPORT INFORMATION
  Report Type: Spontaneous
  Country: US (occurrence: None)
  Receive Date: 20220204
  Receipt Date: 20220204
  Transmission Date: 20220423
  Serious: Yes (Hospitalization)
  Sender: FDA-Public Use
  Company Number: None

PATIENT
  Sex: Male
  Weight: 66 kg

DRUGS (5)
  1. CISPLATIN [Suspect]
     Active Substance: CISPLATIN
     Dates: end: 20190825
  2. FILGRASTIM [Suspect]
     Active Substance: FILGRASTIM
     Dates: end: 20190827
  3. IFOSFAMIDE [Suspect]
     Active Substance: IFOSFAMIDE
     Dates: end: 20190825
  4. TAXOL [Suspect]
     Active Substance: PACLITAXEL
     Dates: end: 20190821
  5. NEULASTA [Suspect]
     Active Substance: PEGFILGRASTIM
     Dates: end: 20190826

REACTIONS (2)
  - Renal failure [None]
  - Dialysis [None]

NARRATIVE: CASE EVENT DATE: 20190827
